FAERS Safety Report 9688937 (Version 1)
Quarter: 2013Q4

REPORT INFORMATION
  Report Type: Spontaneous
  Country: GB (occurrence: None)
  Receive Date: 20131112
  Receipt Date: 20131112
  Transmission Date: 20140711
  Serious: Yes (Hospitalization)
  Sender: FDA-Public Use
  Company Number: FK201304821

PATIENT
  Age: 77 Year
  Sex: 0

DRUGS (11)
  1. LEVOFLOXACIN [Suspect]
     Indication: PNEUMONIA ASPIRATION
     Route: 042
     Dates: start: 20110414, end: 20110414
  2. MEROPENEM [Suspect]
     Indication: LOWER RESPIRATORY TRACT INFECTION
     Dosage: 2 GM, 3 IN 1 D
     Route: 041
     Dates: start: 20110422, end: 20110429
  3. PIPERACILLIN/ TAZOBACTAM [Suspect]
     Indication: RESPIRATORY FAILURE
     Dosage: 4.5 GM, 3 IN 1 D
     Route: 041
     Dates: start: 20110414, end: 20110422
  4. PIPERACILLIN/ TAZOBACTAM [Suspect]
     Indication: PSEUDOMONAS INFECTION
     Dosage: 4.5 GM, 3 IN 1 D
     Route: 041
     Dates: start: 20110414, end: 20110422
  5. AMOXICILLIN [Suspect]
     Indication: PRODUCT USED FOR UNKNOWN INDICATION
     Dosage: 500 MG, 3 IN 1 D
     Route: 048
     Dates: start: 20100329, end: 20100405
  6. CIPROFLOXACIN [Suspect]
     Indication: PSEUDOMONAS INFECTION
     Dosage: 500 MG, 2 IN 1 D
     Route: 048
     Dates: start: 20110428, end: 20110430
  7. CLARITHROMYCIN (CLARITHROMYCIN) [Suspect]
     Indication: PNEUMONIA ASPIRATION
     Route: 042
     Dates: start: 20110414, end: 20110414
  8. CLARITHROMYCIN (CLARITHROMYCIN) [Suspect]
     Indication: LOWER RESPIRATORY TRACT INFECTION
     Route: 042
     Dates: start: 20110414, end: 20110414
  9. CO-AMOXICLAV [Suspect]
     Indication: PNEUMONIA ASPIRATION
     Route: 042
     Dates: start: 20110413, end: 20110413
  10. TAZOCIN [Suspect]
     Indication: PNEUMONIA ASPIRATION
  11. TEICOPLANIN [Suspect]
     Indication: STAPHYLOCOCCAL INFECTION
     Dates: start: 20110422, end: 20110422

REACTIONS (3)
  - Pseudomonas infection [None]
  - Clostridium difficile infection [None]
  - Lung consolidation [None]
